FAERS Safety Report 5792666-9 (Version None)
Quarter: 2008Q2

REPORT INFORMATION
  Report Type: 
  Country: None (occurrence: None)
  Receive Date: 20080624
  Receipt Date: 20080609
  Transmission Date: 20081010
  Serious: Yes (Hospitalization)
  Sender: FDA-Public Use
  Company Number: DSM-2008-00551

PATIENT
  Age: 63 Year
  Sex: Female

DRUGS (6)
  1. ALTEIS (OLMESARTAN MEDOXOMIL) (TABLET) (OLMESARTAN) [Suspect]
     Dosage: (1 IN 1 D), ORAL
     Route: 048
  2. SPIRIVA [Suspect]
     Dosage: INHALATION
     Route: 055
     Dates: start: 20071101, end: 20071101
  3. ALDACTAZINE (SPIRONOLACTONE, ALTIZIDE) (SPIRONOLACTONE, ALTIZIDE) [Suspect]
     Dosage: ORAL
     Route: 048
  4. CHONDROSULF (CHONDROITIN SULFATE SODIUM) (CHONDROITIN SULFATE SODIUM) [Suspect]
     Dosage: ORAL
     Route: 048
  5. LIPANTHYL (FENOFIBRATE) (FENOFIBRATE) [Suspect]
     Dosage: ORAL
     Route: 048
  6. VITAMINE D 3 B.O.N. (COLECALCIFEROL) (COLECALIFEROL) [Suspect]
     Dosage: ORAL
     Route: 048

REACTIONS (3)
  - ASTHENIA [None]
  - RENAL IMPAIRMENT [None]
  - SCLERODERMA [None]
